FAERS Safety Report 7308815-7 (Version None)
Quarter: 2011Q1

REPORT INFORMATION
  Report Type: 
  Country: None (occurrence: None)
  Receive Date: 20110211
  Receipt Date: 20110126
  Transmission Date: 20110831
  Serious: Yes (Hospitalization)
  Sender: FDA-Public Use
  Company Number: PHHY2011AT06186

PATIENT
  Age: 51 Year
  Sex: Female

DRUGS (2)
  1. ALCOHOL (ETHANOL) [Concomitant]
  2. SIRDALUD (TIZANIDINE HYDROCHLORIDE) UNKNOWN [Suspect]
     Dosage: 4 MG, 10 TIMES IN 1 TOTAL
     Dates: start: 20100227, end: 20100227

REACTIONS (9)
  - RESPIRATORY FAILURE [None]
  - INTENTIONAL OVERDOSE [None]
  - COMA [None]
  - SINUS BRADYCARDIA [None]
  - ANURIA [None]
  - ELECTROCARDIOGRAM QRS COMPLEX PROLONGED [None]
  - HYPOTENSION [None]
  - HYPERGLYCAEMIA [None]
  - POISONING [None]
